FAERS Safety Report 8697997 (Version 3)
Quarter: 2012Q4

REPORT INFORMATION
  Report Type: 
  Country: US (occurrence: US)
  Receive Date: 20120801
  Receipt Date: 20120906
  Transmission Date: 20130627
  Serious: Yes (Other)
  Sender: FDA-Public Use
  Company Number: CHPA2012US006230

PATIENT
  Age: 79 Year
  Sex: Female
  Weight: 61.22 kg

DRUGS (9)
  1. MAALOX ANTACID/ANTIGAS RS LIQ COOL MINT [Suspect]
     Indication: GASTROOESOPHAGEAL REFLUX DISEASE
     Dosage: 1 TSP, 6QD
     Route: 048
     Dates: start: 201105
  2. MAALOX ANTACID/ANTIGAS RS LIQ COOL MINT [Suspect]
     Dosage: Unk, PRN
     Route: 048
     Dates: start: 201005, end: 201105
  3. CARDURA CR [Concomitant]
     Indication: HYPERTENSION
     Dosage: 1 mg, QD
     Route: 048
  4. ACIPHEX [Concomitant]
     Indication: GASTROOESOPHAGEAL REFLUX DISEASE
     Dosage: 40 mg, QD
     Route: 048
  5. ENSURE [Concomitant]
     Dosage: UNK, UNK
  6. BELLADONNA EXTRACT [Concomitant]
     Indication: MUSCLE SPASMS
     Dosage: UNK, UNK
  7. AMBIEN [Concomitant]
     Indication: INSOMNIA
     Dosage: UNK, UNK
  8. ANTIHYPERTENSIVES [Concomitant]
     Indication: BLOOD PRESSURE MANAGEMENT
     Dosage: UNK, UNK
  9. TYLENOL ARTHRITIS [Concomitant]
     Dosage: UNK, UNK

REACTIONS (9)
  - Diverticulitis [Not Recovered/Not Resolved]
  - Diabetes mellitus [Unknown]
  - Weight decreased [Not Recovered/Not Resolved]
  - Hypophagia [Unknown]
  - Asthenia [Unknown]
  - Malaise [Not Recovered/Not Resolved]
  - Off label use [Unknown]
  - Underdose [Unknown]
  - Inappropriate schedule of drug administration [Unknown]
